FAERS Safety Report 7774458-4 (Version None)
Quarter: 2011Q3

REPORT INFORMATION
  Report Type: 
  Country: None (occurrence: None)
  Receive Date: 20110923
  Receipt Date: 20110920
  Transmission Date: 20111222
  Serious: Yes (Other)
  Sender: FDA-Public Use
  Company Number: GB-ROCHE-729704

PATIENT
  Sex: Female
  Weight: 79 kg

DRUGS (7)
  1. TOCILIZUMAB [Suspect]
     Route: 042
     Dates: start: 20090801
  2. CALCICHEW D3 FORTE [Concomitant]
     Indication: OSTEOPOROSIS
     Dosage: FREQUENCY: OD
     Route: 048
  3. RAMIPRIL [Suspect]
     Route: 048
     Dates: start: 20080101
  4. FUROSEMIDE [Suspect]
     Route: 048
     Dates: start: 20080101
  5. TOCILIZUMAB [Suspect]
     Route: 042
     Dates: start: 20110407
  6. TOCILIZUMAB [Suspect]
     Route: 042
     Dates: start: 20090908, end: 20100417
  7. ZOLEDRONIC [Concomitant]
     Indication: OSTEOPOROSIS
     Dosage: FREQUENCY: YEARLY
     Route: 042

REACTIONS (5)
  - RENAL AMYLOIDOSIS [None]
  - RENAL FAILURE CHRONIC [None]
  - HYPERTENSION [None]
  - RENAL IMPAIRMENT [None]
  - CARDIAC FAILURE [None]
